FAERS Safety Report 20644400 (Version 1)
Quarter: 2022Q1

REPORT INFORMATION
  Report Type: Spontaneous
  Country: US (occurrence: US)
  Receive Date: 20220328
  Receipt Date: 20220328
  Transmission Date: 20220423
  Serious: No
  Sender: FDA-Public Use
  Company Number: US-SA-SAC20220321001632

PATIENT
  Sex: Female

DRUGS (4)
  1. DUPIXENT [Suspect]
     Active Substance: DUPILUMAB
     Indication: Dermatitis atopic
     Dosage: 300 MG, QOW
     Route: 058
     Dates: start: 20200303
  2. MIRENA [Concomitant]
     Active Substance: LEVONORGESTREL
  3. METHYLERGOMETRINE [Concomitant]
     Active Substance: METHYLERGONOVINE MALEATE
  4. MILI [ETHINYLESTRADIOL;NORGESTIMATE] [Concomitant]
     Dosage: TAB 0.25/35

REACTIONS (5)
  - Discomfort [Recovering/Resolving]
  - Sleep disorder [Recovering/Resolving]
  - Injection site bruising [Unknown]
  - Dermatitis atopic [Recovering/Resolving]
  - Rash [Recovering/Resolving]
